FAERS Safety Report 9719956 (Version 2)
Quarter: 2013Q4

REPORT INFORMATION
  Report Type: Spontaneous
  Country: US (occurrence: US)
  Receive Date: 20131128
  Receipt Date: 20131217
  Transmission Date: 20140711
  Serious: Yes (Hospitalization)
  Sender: FDA-Public Use
  Company Number: US-009507513-1311USA011534

PATIENT
  Age: 50 Year
  Sex: Female

DRUGS (4)
  1. PEGINTRON [Suspect]
     Indication: CHRONIC HEPATITIS C
     Dosage: 150 MICROGRAM, ONCE WEEKLY, STRENGTH: 150/0.5, REDIPEN
     Route: 058
     Dates: start: 20130925
  2. PEGINTRON [Suspect]
     Indication: HEPATITIS VIRAL
  3. RIBAPAK [Suspect]
     Indication: HEPATITIS VIRAL
     Dosage: DAILY DOSE: 1200 MG
     Route: 048
  4. INCIVEK [Suspect]
     Indication: HEPATITIS VIRAL
     Dosage: DAILY DOSE: 2250 MG
     Route: 048

REACTIONS (1)
  - Pneumonia [Recovered/Resolved]
